FAERS Safety Report 4373060-4 (Version None)
Quarter: 2004Q2

REPORT INFORMATION
  Report Type: 
  Country: None (occurrence: None)
  Receive Date: 20040603
  Receipt Date: 20040519
  Transmission Date: 20050107
  Serious: Yes (Other)
  Sender: FDA-Public Use
  Company Number: USA040465699

PATIENT
  Age: 55 Year
  Sex: Female
  Weight: 66 kg

DRUGS (4)
  1. EVISTA [Suspect]
     Dosage: 60 MG DAY
     Dates: start: 20000101, end: 20040422
  2. VIOXX [Concomitant]
  3. CALCIUM [Concomitant]
  4. MULTIVITAMIN [Concomitant]

REACTIONS (3)
  - RETINAL TEAR [None]
  - VISUAL ACUITY REDUCED [None]
  - VITREOUS HAEMORRHAGE [None]
